FAERS Safety Report 9279216 (Version 1)
Quarter: 2013Q2

REPORT INFORMATION
  Report Type: Spontaneous
  Country: US (occurrence: US)
  Receive Date: 20130508
  Receipt Date: 20130508
  Transmission Date: 20140414
  Serious: Yes (Other)
  Sender: FDA-Public Use
  Company Number: PHHY2013US045216

PATIENT
  Age: 83 Year
  Sex: Male

DRUGS (2)
  1. ASCRIPTIN BUFFERED REG STRENGTH TABLETS [Suspect]
     Indication: CARDIOVASCULAR EVENT PROPHYLAXIS
     Dosage: 1 DF, DAILY AT NIGHT
     Route: 048
     Dates: start: 1997
  2. ASCRIPTIN BUFFERED REG STRENGTH TABLETS [Suspect]
     Dosage: 1 DF, DAILY AT NIGHT
     Route: 048

REACTIONS (5)
  - Myocardial infarction [Recovered/Resolved]
  - Atrioventricular block [Recovered/Resolved]
  - Diabetes mellitus [Unknown]
  - Hypertension [Unknown]
  - Incorrect drug administration duration [Unknown]
